FAERS Safety Report 12390900 (Version 1)
Quarter: 2016Q2

REPORT INFORMATION
  Report Type: Spontaneous
  Country: NL (occurrence: NL)
  Receive Date: 20160520
  Receipt Date: 20160520
  Transmission Date: 20160815
  Serious: Yes (Life-Threatening)
  Sender: FDA-Public Use
  Company Number: ALCN2016NL003277

PATIENT
  Age: 5 Year
  Sex: Male

DRUGS (1)
  1. CYCLOPENTOLATE HCL [Suspect]
     Active Substance: CYCLOPENTOLATE HYDROCHLORIDE
     Indication: CYCLOPLEGIC REFRACTION
     Dosage: 11 GTT, ONCE/SINGLE
     Route: 047
     Dates: start: 20160421, end: 20160421

REACTIONS (5)
  - Disinhibition [Recovered/Resolved]
  - Inappropriate affect [Recovered/Resolved]
  - Visual impairment [Recovered/Resolved]
  - Abnormal behaviour [Recovered/Resolved]
  - Erythema [Recovered/Resolved]

NARRATIVE: CASE EVENT DATE: 20160421
